FAERS Safety Report 5716340-X (Version None)
Quarter: 2008Q2

REPORT INFORMATION
  Report Type: 
  Country: None (occurrence: None)
  Receive Date: 20080424
  Receipt Date: 20080415
  Transmission Date: 20081010
  Serious: Yes (Hospitalization)
  Sender: FDA-Public Use
  Company Number: US-MERCK-0804USA03519

PATIENT
  Age: 79 Year
  Sex: Female

DRUGS (4)
  1. JANUVIA [Suspect]
     Indication: DIABETES MELLITUS
     Route: 048
     Dates: start: 20080401
  2. MIRAPEX [Suspect]
     Route: 065
  3. LOPID [Concomitant]
     Route: 065
  4. PREMARIN [Concomitant]
     Route: 065

REACTIONS (5)
  - DIZZINESS [None]
  - NASAL CONGESTION [None]
  - PHARYNGEAL OEDEMA [None]
  - RHINORRHOEA [None]
  - TINNITUS [None]
